FAERS Safety Report 4421298-X (Version None)
Quarter: 2004Q3

REPORT INFORMATION
  Report Type: 
  Country: None (occurrence: None)
  Receive Date: 20040707
  Receipt Date: 20040412
  Transmission Date: 20050211
  Serious: No
  Sender: FDA-Public Use
  Company Number: A03200401165

PATIENT

DRUGS (1)
  1. ARIXTRA [Suspect]
     Dosage: SUBCUTANEOUS
     Route: 058

REACTIONS (3)
  - CONSTIPATION [None]
  - DIZZINESS [None]
  - NAUSEA [None]
